FAERS Safety Report 8985887 (Version 1)
Quarter: 2012Q4

REPORT INFORMATION
  Report Type: 
  Country: US (occurrence: US)
  Receive Date: 20121226
  Receipt Date: 20121226
  Transmission Date: 20130627
  Serious: No
  Sender: FDA-Public Use
  Company Number: US-BAYER-2012-130371

PATIENT
  Sex: Male

DRUGS (1)
  1. STIVARGA [Suspect]

REACTIONS (3)
  - Dysphonia [None]
  - Decreased appetite [None]
  - Fatigue [None]
